FAERS Safety Report 9169910 (Version 1)
Quarter: 2013Q1

REPORT INFORMATION
  Report Type: Spontaneous
  Country: DE (occurrence: DE)
  Receive Date: 20130319
  Receipt Date: 20130319
  Transmission Date: 20140127
  Serious: Yes (Life-Threatening, Hospitalization)
  Sender: FDA-Public Use
  Company Number: DE-BIOGENIDEC-2013BI012199

PATIENT
  Age: 32 Year
  Sex: Female
  Weight: 60 kg

DRUGS (1)
  1. AVONEX [Suspect]
     Indication: MULTIPLE SCLEROSIS
     Route: 030
     Dates: start: 20120723, end: 20120723

REACTIONS (3)
  - Drug-induced liver injury [Recovered/Resolved]
  - Hepatic necrosis [Recovered/Resolved]
  - Hepatitis [Recovered/Resolved]
